FAERS Safety Report 25661470 (Version 4)
Quarter: 2025Q4

REPORT INFORMATION
  Report Type: Spontaneous
  Country: PA (occurrence: PA)
  Receive Date: 20250808
  Receipt Date: 20251113
  Transmission Date: 20260117
  Serious: No
  Sender: PFIZER
  Company Number: PA-PFIZER INC-PV202500094581

PATIENT
  Age: 15 Year
  Sex: Male

DRUGS (1)
  1. GENOTROPIN [Suspect]
     Active Substance: SOMATROPIN
     Dosage: 2.2 MG, 1X/DAY

REACTIONS (4)
  - Drug dose omission by device [Unknown]
  - Device malfunction [Unknown]
  - Device information output issue [Unknown]
  - Device power source issue [Unknown]
